FAERS Safety Report 7738629-5 (Version None)
Quarter: 2011Q3

REPORT INFORMATION
  Report Type: 
  Country: None (occurrence: None)
  Receive Date: 20110908
  Receipt Date: 20110907
  Transmission Date: 20111222
  Serious: Yes (Life-Threatening)
  Sender: FDA-Public Use
  Company Number: GB-ABBOTT-11P-167-0852359-00

PATIENT
  Sex: Female

DRUGS (7)
  1. KEPPRA [Suspect]
     Indication: MENTAL DISORDER
  2. ZONISAMIDE [Suspect]
     Indication: MENTAL DISORDER
  3. VENLAFAXINE HYDROCHLORIDE [Concomitant]
     Indication: PRODUCT USED FOR UNKNOWN INDICATION
  4. VALPROATE SODIUM [Suspect]
     Indication: EPILEPSY
     Dosage: DAILY DOSE: 2000MG
     Route: 048
  5. KEPPRA [Suspect]
     Indication: EPILEPSY
     Dosage: DAILY DOSE: 2000MG
     Route: 048
  6. ZONISAMIDE [Suspect]
     Indication: EPILEPSY
     Dosage: DAILY DOSE: 150MG
     Route: 048
  7. VALPROATE SODIUM [Suspect]
     Indication: MENTAL DISORDER

REACTIONS (6)
  - PALPITATIONS [None]
  - CONVULSION [None]
  - ANXIETY [None]
  - MENTAL DISORDER [None]
  - MICTURITION URGENCY [None]
  - HYPERVENTILATION [None]
